FAERS Safety Report 7437046-5 (Version None)
Quarter: 2011Q2

REPORT INFORMATION
  Report Type: 
  Country: None (occurrence: None)
  Receive Date: 20110426
  Receipt Date: 20110411
  Transmission Date: 20111010
  Serious: Yes (Other)
  Sender: FDA-Public Use
  Company Number: PHHY2011US27286

PATIENT
  Sex: Male
  Weight: 198 kg

DRUGS (13)
  1. VITAMIN B6 [Concomitant]
  2. ROCEPHIN [Concomitant]
     Dosage: UNK
  3. AMLODIPINE [Concomitant]
  4. FLUCONAZOLE [Concomitant]
  5. VITAMIN D [Concomitant]
  6. KLOR-CON [Concomitant]
  7. LUNESTA [Concomitant]
  8. VIDAZA [Concomitant]
  9. EXJADE [Suspect]
     Indication: MYELODYSPLASTIC SYNDROME
     Dosage: 500 MG, QD
     Route: 048
     Dates: start: 20110316
  10. OMEPRAZOLE [Concomitant]
  11. FOLIC ACID [Concomitant]
  12. LIPITOR [Concomitant]
     Dosage: UNK
  13. ARANESP [Concomitant]
     Dosage: 500 UG, BIW

REACTIONS (5)
  - HAEMATURIA [None]
  - RASH MACULAR [None]
  - RASH GENERALISED [None]
  - PRURITUS [None]
  - ESCHERICHIA INFECTION [None]
